FAERS Safety Report 6080857-1 (Version None)
Quarter: 2009Q1

REPORT INFORMATION
  Report Type: 
  Country: None (occurrence: None)
  Receive Date: 20090217
  Receipt Date: 20090204
  Transmission Date: 20090719
  Serious: Yes (Other)
  Sender: FDA-Public Use
  Company Number: US-SANOFI-SYNTHELABO-A03200900500

PATIENT
  Age: 57 Year
  Sex: Female

DRUGS (3)
  1. ZOLPIDEM NOS [Suspect]
     Indication: INSOMNIA
     Route: 048
     Dates: start: 20081028, end: 20081028
  2. BENADRYL [Concomitant]
     Indication: NASAL CONGESTION
     Dosage: UNK
     Route: 065
  3. BENADRYL [Concomitant]
     Indication: HYPERSENSITIVITY
     Dosage: UNK
     Route: 065

REACTIONS (2)
  - MEMORY IMPAIRMENT [None]
  - ROAD TRAFFIC ACCIDENT [None]
